FAERS Safety Report 4451945-8 (Version None)
Quarter: 2004Q3

REPORT INFORMATION
  Report Type: 
  Country: None (occurrence: None)
  Receive Date: 20040916
  Receipt Date: 20040831
  Transmission Date: 20050211
  Serious: Yes (Hospitalization, Other)
  Sender: FDA-Public Use
  Company Number: 2004S1002592

PATIENT
  Age: 83 Year
  Sex: Female

DRUGS (6)
  1. KETOCONAZOLE TABLETS 200 MG [Suspect]
     Indication: CARCINOMA
     Dosage: 400 MG 1 DAY, ORAL
     Route: 048
     Dates: start: 20040727, end: 20040801
  2. IXABEPILONE 30 MG BRISTOL MYERS SQUIBB [Suspect]
     Indication: CARCINOMA
     Dosage: 30 MG, IV
     Route: 042
     Dates: start: 20040728, end: 20040728
  3. DIPHENHYDRAMINE HCL [Concomitant]
  4. MAGNESIUM [Concomitant]
  5. IRON PREPARATION [Concomitant]
  6. RANITIDINE [Concomitant]

REACTIONS (8)
  - ANAEMIA [None]
  - ATRIAL FLUTTER [None]
  - CANDIDIASIS [None]
  - MUCOSAL INFLAMMATION [None]
  - NEUTROPENIA [None]
  - PLEURAL EFFUSION [None]
  - PYREXIA [None]
  - THROMBOCYTOPENIA [None]
